FAERS Safety Report 8250351-8 (Version None)
Quarter: 2012Q1

REPORT INFORMATION
  Report Type: 
  Country: None (occurrence: None)
  Receive Date: 20120328
  Receipt Date: 20120322
  Transmission Date: 20120608
  Serious: Yes (Other)
  Sender: FDA-Public Use
  Company Number: ACO_29559_2012

PATIENT
  Age: 73 Year
  Sex: Female

DRUGS (1)
  1. AMPYRA [Suspect]
     Indication: GAIT DISTURBANCE
     Dosage: 10 MG, BID, ORAL 10 MG, BID, ORAL
     Route: 048

REACTIONS (4)
  - PROCEDURAL COMPLICATION [None]
  - NECK INJURY [None]
  - DYSPHAGIA [None]
  - FALL [None]
